FAERS Safety Report 21666527 (Version 1)
Quarter: 2022Q4

REPORT INFORMATION
  Report Type: Spontaneous
  Country: US (occurrence: US)
  Receive Date: 20221201
  Receipt Date: 20221201
  Transmission Date: 20230112
  Serious: Yes (Other)
  Sender: FDA-Public Use
  Company Number: US-AUROBINDO-AUR-APL-2022-050198

PATIENT
  Age: 72 Year
  Sex: Female
  Weight: 139 kg

DRUGS (1)
  1. COLD-EEZE [Suspect]
     Active Substance: ZINC GLUCONATE
     Indication: Nasopharyngitis
     Dosage: 12 DOSAGE FORM, DAILY( FOR 2 TO 4 DAYS)
     Route: 065

REACTIONS (3)
  - Autoimmune disorder [Unknown]
  - Abdominal pain upper [Unknown]
  - Extra dose administered [Unknown]
